FAERS Safety Report 9885580 (Version 1)
Quarter: 2014Q1

REPORT INFORMATION
  Report Type: Spontaneous
  Country: GB (occurrence: GB)
  Receive Date: 20140210
  Receipt Date: 20140210
  Transmission Date: 20141002
  Serious: Yes (Other)
  Sender: FDA-Public Use
  Company Number: GB-TEVA-460393ISR

PATIENT
  Age: 31 Year
  Sex: Female

DRUGS (2)
  1. SERTRALINE [Suspect]
  2. STEROIDS [Concomitant]
     Indication: ASTHMA

REACTIONS (7)
  - Thyroxine decreased [Recovered/Resolved]
  - Blood thyroid stimulating hormone increased [Not Recovered/Not Resolved]
  - Hypothyroidism [Not Recovered/Not Resolved]
  - Muscle spasms [Not Recovered/Not Resolved]
  - Insomnia [Not Recovered/Not Resolved]
  - Cardiac disorder [Unknown]
  - Thyroxine increased [Unknown]
